FAERS Safety Report 8380975-9 (Version None)
Quarter: 2012Q2

REPORT INFORMATION
  Report Type: 
  Country: None (occurrence: None)
  Receive Date: 20120523
  Receipt Date: 20120430
  Transmission Date: 20120825
  Serious: Yes (Other)
  Sender: FDA-Public Use
  Company Number: DE-UCBSA-057625

PATIENT

DRUGS (2)
  1. KEPPRA [Suspect]
     Dosage: DAILY DOSE: 2000 MG
  2. TRILEPTAL [Concomitant]

REACTIONS (6)
  - DYSARTHRIA [None]
  - DEPENDENT PERSONALITY DISORDER [None]
  - EMOTIONAL DISORDER [None]
  - MEMORY IMPAIRMENT [None]
  - AGGRESSION [None]
  - DEPRESSED MOOD [None]
